FAERS Safety Report 9838846 (Version 1)
Quarter: 2014Q1

REPORT INFORMATION
  Report Type: Spontaneous
  Country: US (occurrence: None)
  Receive Date: 20140117
  Receipt Date: 20140117
  Transmission Date: 20141002
  Serious: Yes (Other)
  Sender: FDA-Public Use
  Company Number: None

PATIENT
  Age: 79 Year
  Sex: Female
  Weight: 62.6 kg

DRUGS (2)
  1. REMICADE 200MG IV Q 8 WEEKS [Suspect]
     Indication: RHEUMATOID ARTHRITIS
     Dosage: 200MG  EVERY 8WKS  IV
     Route: 042
     Dates: start: 2008
  2. METHOTREXATE 2.5MG? [Suspect]
     Indication: RHEUMATOID ARTHRITIS
     Dosage: 8 TABS  WEEKLY  PO?YEARS OF USE
     Route: 048

REACTIONS (1)
  - Diffuse large B-cell lymphoma [None]
